FAERS Safety Report 25702721 (Version 1)
Quarter: 2025Q3

REPORT INFORMATION
  Report Type: Spontaneous
  Country: US (occurrence: US)
  Receive Date: 20250819
  Receipt Date: 20250819
  Transmission Date: 20251020
  Serious: No
  Sender: REGENERON
  Company Number: US-REGENERON PHARMACEUTICALS, INC.-2025-101414

PATIENT
  Sex: Female

DRUGS (3)
  1. PRALUENT [Suspect]
     Active Substance: ALIROCUMAB
     Indication: Blood cholesterol increased
     Dosage: 75 MG, Q2W (EVERY 2 WEEKS)
     Route: 058
  2. PRALUENT [Suspect]
     Active Substance: ALIROCUMAB
     Dosage: 150 MG, Q2W (EVERY 2 WEEKS) (STRENGTH: 150 MG/ML)
     Route: 058
     Dates: start: 20250620
  3. EPIPEN [EPINEPHRINE HYDROCHLORIDE] [Concomitant]
     Indication: Product used for unknown indication

REACTIONS (2)
  - Injection site reaction [Recovered/Resolved]
  - Injection site erythema [Unknown]
